FAERS Safety Report 8458316-8 (Version None)
Quarter: 2012Q2

REPORT INFORMATION
  Report Type: 
  Country: None (occurrence: None)
  Receive Date: 20120615
  Receipt Date: 20120607
  Transmission Date: 20120825
  Serious: Yes (Death, Hospitalization)
  Sender: FDA-Public Use
  Company Number: DKLU1077635

PATIENT
  Age: 6 Month
  Sex: Male
  Weight: 6 kg

DRUGS (4)
  1. SABRIL [Suspect]
     Indication: EPILEPSY
     Dosage: 10 ML, 2 IN 1 D, ORAL
     Route: 048
     Dates: start: 20120303
  2. SABRIL [Suspect]
     Indication: GRAND MAL CONVULSION
     Dosage: 10 ML, 2 IN 1 D, ORAL
     Route: 048
     Dates: start: 20120303
  3. PHENOBARBITAL (PHENOBARBOTAL) [Concomitant]
  4. TOPAMAC (TOPIRAMATRE) [Concomitant]

REACTIONS (1)
  - ENCEPHALOPATHY [None]
